FAERS Safety Report 19819395 (Version 1)
Quarter: 2021Q3

REPORT INFORMATION
  Report Type: Other
  Country: US (occurrence: US)
  Receive Date: 20210913
  Receipt Date: 20210913
  Transmission Date: 20211014
  Serious: No
  Sender: FDA-Public Use
  Company Number: US-NEUROCRINE BIOSCIENCES INC.-2021NBI04914

PATIENT

DRUGS (9)
  1. XARELTO [Concomitant]
     Active Substance: RIVAROXABAN
     Dosage: UNK
  2. FUROSEMIDE. [Concomitant]
     Active Substance: FUROSEMIDE
     Dosage: UNK
  3. HYDROCODONE [Concomitant]
     Active Substance: HYDROCODONE
     Dosage: UNK
  4. DOCUSATE SODIUM [DOCUSATE SODIUM;SENNOSIDE A+B] [Concomitant]
     Dosage: UNK
  5. INGREZZA [Suspect]
     Active Substance: VALBENAZINE
     Indication: TARDIVE DYSKINESIA
     Dosage: 40 MILLIGRAM, QD
     Route: 048
     Dates: start: 2017
  6. ARICEPT [Concomitant]
     Active Substance: DONEPEZIL HYDROCHLORIDE
     Dosage: UNK
  7. CARVEDILOL. [Concomitant]
     Active Substance: CARVEDILOL
     Dosage: UNK
  8. CLOBETASOL [Concomitant]
     Active Substance: CLOBETASOL
     Dosage: UNK
  9. TYLENOL [Concomitant]
     Active Substance: ACETAMINOPHEN
     Dosage: UNK

REACTIONS (2)
  - Memory impairment [Unknown]
  - Decreased appetite [Unknown]
